FAERS Safety Report 20058810 (Version 1)
Quarter: 2021Q4

REPORT INFORMATION
  Report Type: Spontaneous
  Country: JP (occurrence: JP)
  Receive Date: 20211111
  Receipt Date: 20211111
  Transmission Date: 20220303
  Serious: Yes (Hospitalization)
  Sender: FDA-Public Use
  Company Number: JP-SERVIERJAP-S21012328AA

PATIENT
  Age: 72 Year
  Sex: Male

DRUGS (4)
  1. ONIVYDE [Suspect]
     Active Substance: IRINOTECAN HYDROCHLORIDE
     Indication: Pancreatic carcinoma
     Dosage: 74 MG
     Route: 042
     Dates: start: 20201104
  2. ONIVYDE [Suspect]
     Active Substance: IRINOTECAN HYDROCHLORIDE
     Dosage: 74 MG
     Route: 042
     Dates: start: 20211102, end: 20211102
  3. FLUOROURACIL [Concomitant]
     Active Substance: FLUOROURACIL
     Indication: Pancreatic carcinoma
     Dosage: 1356 MG/M2
     Route: 041
     Dates: start: 20201104, end: 20211102
  4. LEVOLEUCOVORIN CALCIUM [Concomitant]
     Active Substance: LEVOLEUCOVORIN CALCIUM
     Indication: Pancreatic carcinoma
     Dosage: 250 MG
     Route: 041
     Dates: start: 20201104, end: 20211102

REACTIONS (2)
  - Pneumonitis chemical [Unknown]
  - Fistula [Unknown]

NARRATIVE: CASE EVENT DATE: 20211102
